FAERS Safety Report 4272595-2 (Version None)
Quarter: 2004Q1

REPORT INFORMATION
  Report Type: 
  Country: None (occurrence: None)
  Receive Date: 20040114
  Receipt Date: 20040114
  Transmission Date: 20041129
  Serious: Yes (Death)
  Sender: FDA-Public Use
  Company Number: None

PATIENT
  Sex: Male
  Weight: 55.4 kg

DRUGS (24)
  1. WARFARIN SODIUM [Suspect]
     Indication: DEEP VEIN THROMBOSIS
     Dosage: 10MG QD ORAL
     Route: 048
     Dates: start: 20030822, end: 20030824
  2. ENOXAPARIN SODIUM [Suspect]
     Indication: DEEP VEIN THROMBOSIS
     Dosage: 60 MG BID SUBCUTANEOUS
     Route: 058
     Dates: start: 20030813, end: 20030813
  3. ACETAMINOPHEN [Concomitant]
  4. ALPHA-TOCOPHEROL [Concomitant]
  5. ASPIRIN [Concomitant]
  6. AZITHROMYCIN [Concomitant]
  7. BISACODYL SUPP [Concomitant]
  8. CITALOPRAM [Concomitant]
  9. CURASOL GEL [Concomitant]
  10. ENOXAPARIN SODIUM [Concomitant]
  11. ETHAMBUTOL HCL [Concomitant]
  12. FUROSEMIDE [Concomitant]
  13. GABAPENTIN [Concomitant]
  14. ISONIAZID [Concomitant]
  15. MAGNESIUM HYDROXIDE TAB [Concomitant]
  16. METOPROLOL [Concomitant]
  17. MULTI-VITAMINS [Concomitant]
  18. ZOSYN [Concomitant]
  19. PYRAZINAMIDE [Concomitant]
  20. PYRIDOXINE [Concomitant]
  21. RIFAMPIN [Concomitant]
  22. TRAZODONE HCL [Concomitant]
  23. WARFARIN SODIUM [Concomitant]
  24. ZIPRASIDONE [Concomitant]

REACTIONS (2)
  - GASTROINTESTINAL HAEMORRHAGE [None]
  - TREATMENT NONCOMPLIANCE [None]
